FAERS Safety Report 25775936 (Version 4)
Quarter: 2025Q3

REPORT INFORMATION
  Report Type: Spontaneous
  Country: EU (occurrence: EU)
  Receive Date: 20250909
  Receipt Date: 20250925
  Transmission Date: 20251021
  Serious: Yes (Other)
  Sender: ABBVIE
  Company Number: EU-JNJFOC-20250904765

PATIENT
  Age: 57 Year

DRUGS (2)
  1. IMBRUVICA [Suspect]
     Active Substance: IBRUTINIB
     Indication: Chronic lymphocytic leukaemia
     Route: 048
     Dates: start: 2024, end: 202509
  2. VENETOCLAX [Suspect]
     Active Substance: VENETOCLAX
     Indication: Chronic lymphocytic leukaemia
     Route: 048
     Dates: start: 2024, end: 202509

REACTIONS (4)
  - Coronary artery disease [Unknown]
  - Dysphagia [Recovering/Resolving]
  - Stress [Unknown]
  - Chest pain [Unknown]

NARRATIVE: CASE EVENT DATE: 20250601
